FAERS Safety Report 7437812-6 (Version None)
Quarter: 2011Q2

REPORT INFORMATION
  Report Type: 
  Country: None (occurrence: None)
  Receive Date: 20110426
  Receipt Date: 20110411
  Transmission Date: 20111010
  Serious: Yes (Other)
  Sender: FDA-Public Use
  Company Number: DE-GENENTECH-316277

PATIENT
  Age: 35 Year
  Sex: Male

DRUGS (7)
  1. ACTONEL [Concomitant]
     Indication: OSTEOPOROSIS
     Dosage: 35 MG, UNK
     Route: 048
  2. DECORTIN [Concomitant]
     Indication: HAEMOLYTIC ANAEMIA
     Route: 048
  3. MABTHERA [Suspect]
     Indication: HAEMOLYTIC ANAEMIA
     Dosage: 500 MG, UNK
     Route: 042
     Dates: start: 20090925, end: 20101125
  4. VITAMIN B-12 [Concomitant]
     Indication: VITAMIN B12 DEFICIENCY
     Dosage: 1000 MG, UNK
     Route: 058
  5. OMEPRAZOLE [Concomitant]
     Indication: PROPHYLAXIS
     Route: 048
  6. CALCIUM D3 [Concomitant]
     Indication: OSTEOPOROSIS
     Route: 048
  7. BISOPROLOL [Concomitant]
     Indication: HYPERTENSION
     Dosage: 5 MG, UNK
     Route: 048

REACTIONS (3)
  - GAMMA-GLUTAMYLTRANSFERASE INCREASED [None]
  - ASPARTATE AMINOTRANSFERASE INCREASED [None]
  - ALANINE AMINOTRANSFERASE [None]
